FAERS Safety Report 6388781-1 (Version None)
Quarter: 2009Q4

REPORT INFORMATION
  Report Type: 
  Country: None (occurrence: None)
  Receive Date: 20091005
  Receipt Date: 20091001
  Transmission Date: 20100525
  Serious: Yes (Life-Threatening, Other)
  Sender: FDA-Public Use
  Company Number: GB-WYE-G04547209

PATIENT
  Age: 65 Year
  Sex: Female
  Weight: 80 kg

DRUGS (2)
  1. ANADIN IBUPROFEN [Suspect]
     Indication: ARTHRALGIA
     Dosage: 40MG AS REQUIRED
  2. BENDROFLUMETHIAZIDE [Concomitant]
     Dosage: 2.5MG (FREQUENCY UNSPECIFIED)

REACTIONS (3)
  - GASTRIC ULCER [None]
  - GASTROINTESTINAL HAEMORRHAGE [None]
  - HYPOVOLAEMIC SHOCK [None]
